FAERS Safety Report 9282582 (Version 2)
Quarter: 2013Q2

REPORT INFORMATION
  Report Type: Report from Study
  Country: FI (occurrence: FI)
  Receive Date: 20130510
  Receipt Date: 20130516
  Transmission Date: 20140414
  Serious: Yes (Other)
  Sender: FDA-Public Use
  Company Number: PHHY2013FI044210

PATIENT
  Age: 17 Year
  Sex: Female

DRUGS (6)
  1. LEPONEX [Suspect]
     Indication: SCHIZOPHRENIA
     Dosage: 300 MG, DAILY
     Dates: start: 2012
  2. TEMESTA [Concomitant]
     Dosage: 4 MG, DAILY
  3. IBUPROFEN [Concomitant]
  4. CERAZETTE [Concomitant]
     Dosage: UNK
  5. D VITAMIINI [Concomitant]
     Dosage: UNK
  6. TRUXAL [Concomitant]
     Dosage: AS NEEDED

REACTIONS (6)
  - Tunnel vision [Not Recovered/Not Resolved]
  - Visual impairment [Unknown]
  - Visual field defect [Not Recovered/Not Resolved]
  - Palpitations [Unknown]
  - Salivary hypersecretion [Unknown]
  - Weight increased [Unknown]
